FAERS Safety Report 10911499 (Version 2)
Quarter: 2015Q2

REPORT INFORMATION
  Report Type: Report from Study
  Country: JP (occurrence: JP)
  Receive Date: 20150313
  Receipt Date: 20150423
  Transmission Date: 20150821
  Serious: Yes (Hospitalization)
  Sender: FDA-Public Use
  Company Number: JP-ROCHE-1551089

PATIENT
  Age: 89 Year
  Sex: Female

DRUGS (10)
  1. SODIUM HYALURONATE [Concomitant]
     Active Substance: HYALURONATE SODIUM
     Dosage: AT THE KNEE WRIST PAIN?REPORTED AS: ARTZ DISPO
     Route: 061
     Dates: start: 20130503
  2. LIDOCAINE. [Concomitant]
     Active Substance: LIDOCAINE
     Dosage: WHEN ARTZ DISPOSABLE IS ADMINISTERED
     Route: 061
     Dates: start: 20130503
  3. FOLIAMIN [Concomitant]
     Active Substance: FOLIC ACID
     Route: 048
     Dates: start: 20140108, end: 20140528
  4. METHOXY POLYETHYLENE GLYCOL-EPOETIN BETA [Suspect]
     Active Substance: METHOXY POLYETHYLENE GLYCOL-EPOETIN BETA
     Indication: NEPHROGENIC ANAEMIA
     Route: 058
     Dates: start: 20130405, end: 20140108
  5. ZEFLOPTO [Concomitant]
     Route: 048
  6. TSUMURA SHAKUYAKUKANZOTO [Concomitant]
     Active Substance: HERBALS
     Dosage: A DOSE
     Route: 048
  7. TERIBONE [Concomitant]
     Active Substance: TERIPARATIDE ACETATE
     Route: 058
     Dates: end: 20130517
  8. EPADEL-S [Concomitant]
     Active Substance: ETHYL ICOSAPENTATE\ICOSAPENT
     Route: 048
  9. EDIROL [Concomitant]
     Active Substance: ELDECALCITOL
     Route: 048
     Dates: start: 20130524
  10. METHOXY POLYETHYLENE GLYCOL-EPOETIN BETA [Suspect]
     Active Substance: METHOXY POLYETHYLENE GLYCOL-EPOETIN BETA
     Indication: NEPHROGENIC ANAEMIA
     Route: 058
     Dates: start: 20130226, end: 20130226

REACTIONS (1)
  - Plasma cell myeloma [Unknown]

NARRATIVE: CASE EVENT DATE: 20141024
